FAERS Safety Report 4365634-1 (Version None)
Quarter: 2004Q2

REPORT INFORMATION
  Report Type: 
  Country: None (occurrence: None)
  Receive Date: 20040521
  Receipt Date: 20040429
  Transmission Date: 20050107
  Serious: Yes (Death)
  Sender: FDA-Public Use
  Company Number: US_0405102800

PATIENT
  Age: 51 Year
  Sex: Female

DRUGS (1)
  1. XIGRIS [Suspect]
     Indication: SEPSIS

REACTIONS (3)
  - BRAIN DEATH [None]
  - ISCHAEMIC STROKE [None]
  - PUPILS UNEQUAL [None]
